FAERS Safety Report 8226418-7 (Version None)
Quarter: 2012Q1

REPORT INFORMATION
  Report Type: 
  Country: None (occurrence: None)
  Receive Date: 20120321
  Receipt Date: 20120312
  Transmission Date: 20120608
  Serious: Yes (Hospitalization)
  Sender: FDA-Public Use
  Company Number: US-ASTRAZENECA-2012SE16991

PATIENT
  Age: 39 Year
  Sex: Male
  Weight: 72.6 kg

DRUGS (17)
  1. SEROQUEL [Suspect]
     Route: 048
  2. HALDOL [Concomitant]
     Indication: MOOD ALTERED
     Route: 048
     Dates: start: 20090101
  3. RISPERDAL [Concomitant]
  4. ATIVAN [Concomitant]
  5. DEPAKOTE [Concomitant]
  6. SEROQUEL [Suspect]
     Dosage: 1000 MG TO 1200 MG DEPENDS ON HIS STATE
     Route: 048
  7. CLONAZEPAM [Concomitant]
     Indication: ANXIETY
     Route: 048
     Dates: start: 20060101
  8. PAXIL [Concomitant]
  9. ABILIFY [Concomitant]
  10. SEROQUEL [Suspect]
     Indication: SCHIZOAFFECTIVE DISORDER BIPOLAR TYPE
     Route: 048
     Dates: start: 20040101
  11. VISTARIL [Concomitant]
  12. SEROQUEL [Suspect]
     Route: 048
     Dates: start: 20120101
  13. BENZTROPINE MESYLATE [Concomitant]
     Indication: TARDIVE DYSKINESIA
     Route: 048
  14. ZYPREXA [Concomitant]
  15. LITHIUM CARBONATE [Concomitant]
  16. LAMOTRIGINE [Concomitant]
     Indication: MOOD ALTERED
     Route: 048
     Dates: start: 20060101
  17. GEODON [Concomitant]

REACTIONS (10)
  - HYPERGLYCAEMIA [None]
  - AGITATION [None]
  - SUICIDAL BEHAVIOUR [None]
  - DRUG EFFECT DECREASED [None]
  - OFF LABEL USE [None]
  - AGGRESSION [None]
  - DRUG DOSE OMISSION [None]
  - PHYSICAL ASSAULT [None]
  - WEIGHT INCREASED [None]
  - HYPERTRIGLYCERIDAEMIA [None]
